FAERS Safety Report 8179867-X (Version None)
Quarter: 2012Q1

REPORT INFORMATION
  Report Type: 
  Country: None (occurrence: None)
  Receive Date: 20120302
  Receipt Date: 20120209
  Transmission Date: 20120608
  Serious: No
  Sender: FDA-Public Use
  Company Number: US-COVIDIEN/TYCO HEALTHCARE/MALLINCKRODT-T201102936

PATIENT
  Sex: Female

DRUGS (1)
  1. SODIUM IODIDE I 123 [Suspect]
     Indication: SCAN THYROID GLAND
     Dosage: 100 ?CI, SINGLE
     Route: 048
     Dates: start: 20111215, end: 20111215

REACTIONS (1)
  - BREAST MILK DISCOLOURATION [None]
